FAERS Safety Report 19367807 (Version 1)
Quarter: 2021Q2

REPORT INFORMATION
  Report Type: Spontaneous
  Country: US (occurrence: US)
  Receive Date: 20210603
  Receipt Date: 20210603
  Transmission Date: 20210717
  Serious: No
  Sender: FDA-Public Use
  Company Number: US-TARO-2021TAR00127

PATIENT

DRUGS (1)
  1. CLOTRIMAZOLE VAGINAL CREAM USP 2% 3 DAY [Suspect]
     Active Substance: CLOTRIMAZOLE
     Indication: FUNGAL INFECTION
     Dosage: QD
     Route: 067
     Dates: start: 20210130

REACTIONS (1)
  - Vulvovaginal burning sensation [Not Recovered/Not Resolved]

NARRATIVE: CASE EVENT DATE: 20210130
